FAERS Safety Report 8377208-6 (Version None)
Quarter: 2012Q1

REPORT INFORMATION
  Report Type: 
  Country: None (occurrence: None)
  Receive Date: 20120323
  Receipt Date: 20110325
  Transmission Date: 20120608
  Serious: Yes (Hospitalization)
  Sender: FDA-Public Use
  Company Number: 163-21880-11033010

PATIENT
  Age: 80 Year
  Sex: Male
  Weight: 53.9327 kg

DRUGS (4)
  1. REVLIMID [Suspect]
     Indication: MULTIPLE MYELOMA
     Dosage: 15 MG, QOD X 21 DAYS/OFF 7 DAYS, PO
     Route: 048
     Dates: start: 20110106
  2. DEXAMETHASONE (DEXAMETHASONE0 (TABLETS) [Concomitant]
  3. ASPIRIN (ACETYLSALICYLIC ACID) (CHEWABLE TABLET) [Concomitant]
  4. LISINOPRIL [Concomitant]

REACTIONS (1)
  - RENAL FAILURE ACUTE [None]
